FAERS Safety Report 9530172 (Version 1)
Quarter: 2013Q3

REPORT INFORMATION
  Report Type: Spontaneous
  Country: AT (occurrence: AT)
  Receive Date: 20130917
  Receipt Date: 20130917
  Transmission Date: 20140515
  Serious: Yes (Death)
  Sender: FDA-Public Use
  Company Number: PHHY2013AT102775

PATIENT
  Age: 33 Year
  Sex: Male

DRUGS (5)
  1. RIBAVIRIN [Suspect]
     Indication: CHRONIC HEPATITIS C
     Dosage: 1000 MG/DAY
  2. PEGINTERFERON [Suspect]
     Indication: CHRONIC HEPATITIS C
     Dosage: 180 UG/WEEK
  3. BOCEPREVIR [Suspect]
     Indication: CHRONIC HEPATITIS C
     Dosage: 2400 MG/DAY
  4. ERYTHROPOIETIN [Concomitant]
     Indication: ANAEMIA
  5. RED BLOOD CELLS, CONCENTRATED [Concomitant]
     Indication: ANAEMIA

REACTIONS (2)
  - Pulmonary tuberculosis [Fatal]
  - Pulmonary sepsis [Fatal]
